FAERS Safety Report 12774870 (Version 1)
Quarter: 2016Q3

REPORT INFORMATION
  Report Type: Spontaneous
  Country: US (occurrence: US)
  Receive Date: 20160923
  Receipt Date: 20160923
  Transmission Date: 20161109
  Serious: Yes (Other)
  Sender: FDA-Public Use
  Company Number: US-GLAXOSMITHKLINE-A1017300A

PATIENT
  Age: 75 Year
  Sex: Male

DRUGS (15)
  1. ATROVENT [Concomitant]
     Active Substance: IPRATROPIUM BROMIDE
  2. VENTOLIN HFA [Suspect]
     Active Substance: ALBUTEROL SULFATE
     Indication: CHRONIC OBSTRUCTIVE PULMONARY DISEASE
     Dosage: 2 PUFF(S), UNK
     Route: 055
  3. ADVAIR HFA [Suspect]
     Active Substance: FLUTICASONE PROPIONATE\SALMETEROL XINAFOATE
     Indication: CHRONIC OBSTRUCTIVE PULMONARY DISEASE
     Dosage: 500/50
     Route: 055
     Dates: start: 2011, end: 201302
  4. ALBUTEROL WITH NEBULIZER [Concomitant]
  5. CENTRUM [Concomitant]
     Active Substance: VITAMINS
  6. GLIPIZIDE. [Concomitant]
     Active Substance: GLIPIZIDE
  7. LISINOPRIL. [Concomitant]
     Active Substance: LISINOPRIL
  8. JANUMET [Concomitant]
     Active Substance: METFORMIN HYDROCHLORIDE\SITAGLIPTIN PHOSPHATE
  9. GEMFIBROZIL. [Concomitant]
     Active Substance: GEMFIBROZIL
  10. OXYGEN. [Concomitant]
     Active Substance: OXYGEN
  11. FISH OIL [Concomitant]
     Active Substance: FISH OIL
  12. OMEPRAZOLE. [Concomitant]
     Active Substance: OMEPRAZOLE
  13. ATORVASTATIN [Concomitant]
     Active Substance: ATORVASTATIN
  14. CLOPIDOGREL [Concomitant]
     Active Substance: CLOPIDOGREL BISULFATE
  15. METFORMIN [Concomitant]
     Active Substance: METFORMIN HYDROCHLORIDE

REACTIONS (6)
  - Haematochezia [Recovered/Resolved]
  - Internal haemorrhage [Recovered/Resolved]
  - Lung infection [Recovering/Resolving]
  - Anaemia [Unknown]
  - Drug ineffective [Recovering/Resolving]
  - Transfusion [Recovered/Resolved]

NARRATIVE: CASE EVENT DATE: 201606
